FAERS Safety Report 20648611 (Version 1)
Quarter: 2022Q1

REPORT INFORMATION
  Report Type: Spontaneous
  Country: US (occurrence: None)
  Receive Date: 20220328
  Receipt Date: 20220328
  Transmission Date: 20220423
  Serious: Yes (Life-Threatening, Hospitalization)
  Sender: FDA-Public Use
  Company Number: None

PATIENT
  Age: 30 Year
  Sex: Female
  Weight: 63 kg

DRUGS (9)
  1. CYTOTEC [Suspect]
     Active Substance: MISOPROSTOL
     Dosage: FREQUENCY : EVERY 4 HOURS;?
     Route: 048
     Dates: start: 20220307, end: 20220307
  2. Prenatal vitamins (with iron) [Concomitant]
  3. ADVIL [Concomitant]
     Active Substance: IBUPROFEN
  4. MOTRIN [Concomitant]
     Active Substance: IBUPROFEN
  5. Tylonal [Concomitant]
  6. STOOL SOFTENER (DOCUSATE) [Concomitant]
     Active Substance: DOCUSATE
  7. Witch hazel pads [Concomitant]
  8. HYDROCORTISONE [Concomitant]
     Active Substance: HYDROCORTISONE
  9. EXCEDRIN MIGRAINE [Concomitant]

REACTIONS (9)
  - Nausea [None]
  - Vomiting [None]
  - Diarrhoea [None]
  - Haemorrhage [None]
  - Pyrexia [None]
  - Tachycardia [None]
  - Blood pressure decreased [None]
  - Abnormal labour [None]
  - Infection [None]

NARRATIVE: CASE EVENT DATE: 20220307
